FAERS Safety Report 5503086-6 (Version None)
Quarter: 2007Q4

REPORT INFORMATION
  Report Type: 
  Country: None (occurrence: None)
  Receive Date: 20071029
  Receipt Date: 20071015
  Transmission Date: 20080405
  Serious: Yes (Death)
  Sender: FDA-Public Use
  Company Number: CIP07002194

PATIENT
  Sex: Female

DRUGS (3)
  1. MACROBID [Suspect]
     Dosage: 100 MG, ORAL
     Route: 048
     Dates: start: 20050601
  2. MACROBID [Suspect]
     Dosage: 100 MG, ORAL
     Route: 048
     Dates: start: 20050701
  3. MACROBID [Suspect]
     Dosage: 100 MG, ORAL
     Route: 048
     Dates: start: 20060201

REACTIONS (2)
  - CARDIAC FAILURE CONGESTIVE [None]
  - UNEVALUABLE EVENT [None]
